FAERS Safety Report 8485266-3 (Version None)
Quarter: 2012Q3

REPORT INFORMATION
  Report Type: 
  Country: None (occurrence: None)
  Receive Date: 20120703
  Receipt Date: 20120625
  Transmission Date: 20120928
  Serious: No
  Sender: FDA-Public Use
  Company Number: US-PFIZER INC-2012127231

PATIENT
  Sex: Male
  Weight: 74 kg

DRUGS (3)
  1. XALATAN [Suspect]
     Indication: GLAUCOMA
     Dosage: 1 GTT, 1X/DAY, EACH EYE (QHS)
     Route: 047
     Dates: start: 20030901
  2. CADUET [Suspect]
     Indication: HYPERTENSION
     Dosage: 10/80 MG, 1X/DAY
     Route: 048
     Dates: start: 20110101, end: 20120401
  3. XALATAN [Suspect]
     Indication: OPEN ANGLE GLAUCOMA

REACTIONS (2)
  - BLOOD GLUCOSE INCREASED [None]
  - OEDEMA PERIPHERAL [None]
